FAERS Safety Report 4308951-3 (Version None)
Quarter: 2004Q1

REPORT INFORMATION
  Report Type: 
  Country: None (occurrence: None)
  Receive Date: 20040227
  Receipt Date: 20040217
  Transmission Date: 20041129
  Serious: Yes (Death)
  Sender: FDA-Public Use
  Company Number: JP-JNJFOC-20040202733

PATIENT
  Age: 76 Year
  Sex: Male

DRUGS (7)
  1. FENTANYL [Suspect]
     Indication: CANCER PAIN
     Dosage: 5 MG, 1 IN 3 DAY, TRANSDERMAL
     Route: 062
     Dates: start: 20031217, end: 20040104
  2. LOXOPROFEN SODIUM (LOXOPROFEN SODIUM) [Concomitant]
  3. BIPERIDEN LACTATE (BIPERIDEN LACTATE) [Concomitant]
  4. HALOPERIDOL [Concomitant]
  5. PROTEINS, AMINO ACID AND PREPARATIONS (ALL OTHER THERAPEUTIC PRODUCTS) [Concomitant]
  6. MORPHINE [Concomitant]
  7. MORPHINE SULFATE [Concomitant]

REACTIONS (2)
  - MALIGNANT NEOPLASM PROGRESSION [None]
  - RECTAL CANCER [None]
